FAERS Safety Report 7576328-3 (Version None)
Quarter: 2011Q2

REPORT INFORMATION
  Report Type: 
  Country: None (occurrence: None)
  Receive Date: 20110623
  Receipt Date: 20110623
  Transmission Date: 20111010
  Serious: No
  Sender: FDA-Public Use
  Company Number: None

PATIENT
  Age: 43 Year
  Sex: Male

DRUGS (1)
  1. AUGMENTIN '125' [Suspect]
     Dates: start: 20100313, end: 20100322

REACTIONS (6)
  - JAUNDICE [None]
  - HEPATOTOXICITY [None]
  - LIVER DISORDER [None]
  - CHILLS [None]
  - NAUSEA [None]
  - ABDOMINAL PAIN [None]
